FAERS Safety Report 25234522 (Version 1)
Quarter: 2025Q2

REPORT INFORMATION
  Report Type: Report from Study
  Country: US (occurrence: US)
  Receive Date: 20250424
  Receipt Date: 20250424
  Transmission Date: 20250717
  Serious: Yes (Other)
  Sender: ACADIA PHARMACEUTICALS
  Company Number: US-ACADIA PHARMACEUTICALS INC.-ACA-2025-TRF-004760

PATIENT
  Sex: Female

DRUGS (3)
  1. DAYBUE [Suspect]
     Active Substance: TROFINETIDE
     Indication: Rett syndrome
     Dosage: 40 MILLILITER, BID
  2. FINTEPLA [Suspect]
     Active Substance: FENFLURAMINE
     Indication: Product used for unknown indication
     Route: 065
  3. FINTEPLA [Suspect]
     Active Substance: FENFLURAMINE
     Route: 065

REACTIONS (1)
  - Seizure [Not Recovered/Not Resolved]
